FAERS Safety Report 20456365 (Version 2)
Quarter: 2022Q1

REPORT INFORMATION
  Report Type: Report from Study
  Country: IT (occurrence: IT)
  Receive Date: 20220210
  Receipt Date: 20220223
  Transmission Date: 20220423
  Serious: Yes (Hospitalization)
  Sender: FDA-Public Use
  Company Number: IT-CELGENE-ITA-20220201875

PATIENT
  Age: 67 Year
  Sex: Male
  Weight: 74.3 kg

DRUGS (24)
  1. POMALIDOMIDE [Suspect]
     Active Substance: POMALIDOMIDE
     Indication: Plasma cell myeloma
     Route: 048
     Dates: start: 20210113, end: 20210302
  2. CILTACABTAGENE AUTOLEUCEL [Suspect]
     Active Substance: CILTACABTAGENE AUTOLEUCEL
     Indication: Plasma cell myeloma
     Route: 041
     Dates: start: 20210331, end: 20210331
  3. DARATUMUMAB [Suspect]
     Active Substance: DARATUMUMAB
     Indication: Plasma cell myeloma
     Route: 058
     Dates: start: 20210113, end: 20210303
  4. DEXAMETHASONE [Suspect]
     Active Substance: DEXAMETHASONE
     Indication: Plasma cell myeloma
     Route: 048
     Dates: start: 20210113, end: 20210304
  5. CYCLOPHOSPHAMIDE [Suspect]
     Active Substance: CYCLOPHOSPHAMIDE
     Indication: Plasma cell myeloma
     Route: 041
     Dates: start: 20210326, end: 20210328
  6. FLUDARABINE [Suspect]
     Active Substance: FLUDARABINE PHOSPHATE
     Indication: Plasma cell myeloma
     Route: 041
     Dates: start: 20210326, end: 20210328
  7. ACETAMINOPHEN [Concomitant]
     Active Substance: ACETAMINOPHEN
     Indication: Flank pain
     Route: 048
     Dates: start: 20210430
  8. FENTANYL [Concomitant]
     Active Substance: FENTANYL
     Indication: Flank pain
     Route: 062
     Dates: start: 20210506
  9. ACETAMINOPHEN\OXYCODONE HYDROCHLORIDE [Concomitant]
     Active Substance: ACETAMINOPHEN\OXYCODONE HYDROCHLORIDE
     Indication: Flank pain
     Route: 048
     Dates: start: 20210506
  10. PANTOPRAZOLE [Concomitant]
     Active Substance: PANTOPRAZOLE
     Indication: Prophylaxis
     Route: 048
     Dates: start: 20210327
  11. LEVETIRACETAM [Concomitant]
     Active Substance: LEVETIRACETAM
     Indication: Prophylaxis
     Dosage: 5000 MILLIGRAM
     Route: 048
     Dates: start: 20210329
  12. LEVETIRACETAM [Concomitant]
     Active Substance: LEVETIRACETAM
     Dosage: 750 MILLIGRAM
     Route: 048
     Dates: start: 20210902
  13. BACTRIM [Concomitant]
     Active Substance: SULFAMETHOXAZOLE\TRIMETHOPRIM
     Indication: Infection prophylaxis
     Dosage: 800/160 MG
     Route: 065
     Dates: start: 20210113
  14. ACYCLOVIR [Concomitant]
     Active Substance: ACYCLOVIR
     Indication: Infection prophylaxis
     Dosage: 800 MILLIGRAM
     Route: 048
     Dates: start: 20210810
  15. AMLODIPINE [Concomitant]
     Active Substance: AMLODIPINE BESYLATE
     Indication: Hypertension
     Dosage: 10 MILLIGRAM
     Route: 048
     Dates: start: 20210810
  16. GLIMEPIRIDE [Concomitant]
     Active Substance: GLIMEPIRIDE
     Indication: Diabetes mellitus
     Dosage: 3 MILLIGRAM
     Route: 048
     Dates: start: 20210811
  17. Insulina Aspart [Concomitant]
     Indication: Diabetes mellitus
     Dosage: 300
     Route: 058
     Dates: start: 20210812
  18. INSULIN GLARGINE [Concomitant]
     Active Substance: INSULIN GLARGINE
     Indication: Diabetes mellitus
     Dosage: 1000
     Route: 058
     Dates: start: 20210812
  19. RAMIPRIL [Concomitant]
     Active Substance: RAMIPRIL
     Indication: Prophylaxis
     Route: 048
     Dates: start: 20210816
  20. FOLIC ACID [Concomitant]
     Active Substance: FOLIC ACID
     Indication: Nutritional supplementation
     Route: 048
     Dates: start: 20210901
  21. MEDROL [Concomitant]
     Active Substance: METHYLPREDNISOLONE
     Indication: Facial paralysis
     Dosage: 32 MILLIGRAM
     Route: 048
     Dates: start: 20210902
  22. MEDROL [Concomitant]
     Active Substance: METHYLPREDNISOLONE
     Indication: Polyneuropathy
  23. Lysine Salicylate [Concomitant]
     Indication: Thrombosis prophylaxis
     Route: 048
  24. FUROSEMIDE [Concomitant]
     Active Substance: FUROSEMIDE
     Indication: Hypertension
     Route: 048

REACTIONS (1)
  - Colitis [Recovered/Resolved]

NARRATIVE: CASE EVENT DATE: 20211221
